FAERS Safety Report 23179389 (Version 2)
Quarter: 2023Q4

REPORT INFORMATION
  Report Type: Report from Study
  Country: US (occurrence: US)
  Receive Date: 20231113
  Receipt Date: 20231130
  Transmission Date: 20240110
  Serious: No
  Sender: FDA-Public Use
  Company Number: US-AstraZeneca-CH-00502090A

PATIENT
  Age: 62 Year
  Sex: Female

DRUGS (1)
  1. SOLIRIS [Suspect]
     Active Substance: ECULIZUMAB
     Indication: Neuromyelitis optica spectrum disorder
     Dosage: UNK UNK, Q2W
     Route: 042

REACTIONS (9)
  - Pain [Recovering/Resolving]
  - Poor venous access [Unknown]
  - Catheter site pain [Unknown]
  - Eye pain [Recovering/Resolving]
  - Photophobia [Recovering/Resolving]
  - Off label use [Unknown]
  - Dizziness [Unknown]
  - Vision blurred [Recovering/Resolving]
  - Fatigue [Recovering/Resolving]

NARRATIVE: CASE EVENT DATE: 20231018
